FAERS Safety Report 21082279 (Version 1)
Quarter: 2022Q3

REPORT INFORMATION
  Report Type: Spontaneous
  Country: US (occurrence: None)
  Receive Date: 20220714
  Receipt Date: 20220714
  Transmission Date: 20221027
  Serious: Yes (Disabling)
  Sender: FDA-Public Use
  Company Number: None

PATIENT
  Age: 44 Year
  Sex: Female
  Weight: 51.75 kg

DRUGS (1)
  1. NEXTSTELLIS [Suspect]
     Active Substance: DROSPIRENONE\ESTETROL MONOHYDRATE

REACTIONS (3)
  - Dizziness [None]
  - Balance disorder [None]
  - Palpitations [None]

NARRATIVE: CASE EVENT DATE: 20220603
